FAERS Safety Report 7704150-3 (Version None)
Quarter: 2011Q3

REPORT INFORMATION
  Report Type: 
  Country: None (occurrence: None)
  Receive Date: 20110801
  Receipt Date: 20110404
  Transmission Date: 20111222
  Serious: Yes (Other)
  Sender: FDA-Public Use
  Company Number: AMAG201100104

PATIENT
  Age: 51 Year
  Sex: Female

DRUGS (4)
  1. FERAHEME [Suspect]
     Indication: IRON DEFICIENCY ANAEMIA
     Dosage: 510 MG, SINGLE, IVP, INTRAVENOUS
     Route: 042
     Dates: start: 20110318, end: 20110318
  2. FERAHEME [Suspect]
     Indication: MENORRHAGIA
     Dosage: 510 MG, SINGLE, IVP, INTRAVENOUS
     Route: 042
     Dates: start: 20110318, end: 20110318
  3. DEXLANSOPRAZOLE (DEXLANSOPRAZOLE) [Concomitant]
  4. VITAMIN D [Concomitant]

REACTIONS (10)
  - CHILLS [None]
  - DYSPNOEA [None]
  - FLUSHING [None]
  - PALPITATIONS [None]
  - OXYGEN SATURATION DECREASED [None]
  - FEELING ABNORMAL [None]
  - HYPERHIDROSIS [None]
  - HYPERTENSION [None]
  - ANAPHYLACTIC REACTION [None]
  - PRESYNCOPE [None]
